FAERS Safety Report 9191191 (Version 1)
Quarter: 2013Q1

REPORT INFORMATION
  Report Type: Spontaneous
  Country: US (occurrence: US)
  Receive Date: 20130326
  Receipt Date: 20130326
  Transmission Date: 20140127
  Serious: No
  Sender: FDA-Public Use
  Company Number: US-ASTRAZENECA-2012SE55539

PATIENT
  Age: 60 Year
  Sex: Female
  Weight: 90.7 kg

DRUGS (4)
  1. NEXIUM [Suspect]
     Indication: GASTROOESOPHAGEAL REFLUX DISEASE
     Route: 048
  2. NEXIUM [Suspect]
     Indication: GASTRIC ULCER
     Route: 048
  3. MEDICATION FOR H PYLORI [Concomitant]
     Indication: HELICOBACTER INFECTION
  4. ANTIBIOTICS [Concomitant]

REACTIONS (2)
  - Gout [Unknown]
  - Off label use [Unknown]
